FAERS Safety Report 20812344 (Version 2)
Quarter: 2022Q3

REPORT INFORMATION
  Report Type: Spontaneous
  Country: US (occurrence: US)
  Receive Date: 20220511
  Receipt Date: 20220824
  Transmission Date: 20221026
  Serious: No
  Sender: FDA-Public Use
  Company Number: US-BRISTOL-MYERS SQUIBB COMPANY-USA-20220101714

PATIENT
  Age: 80 Year
  Sex: Female

DRUGS (1)
  1. POMALYST [Suspect]
     Active Substance: POMALIDOMIDE
     Indication: Product used for unknown indication
     Route: 048
     Dates: start: 202107

REACTIONS (5)
  - Fatigue [Unknown]
  - Lymph node pain [Unknown]
  - Mastication disorder [Unknown]
  - Glossodynia [Unknown]
  - Tenderness [Unknown]

NARRATIVE: CASE EVENT DATE: 20220311
